FAERS Safety Report 19888365 (Version 1)
Quarter: 2021Q3

REPORT INFORMATION
  Report Type: Other
  Country: US (occurrence: US)
  Receive Date: 20210927
  Receipt Date: 20210927
  Transmission Date: 20211014
  Serious: No
  Sender: FDA-Public Use
  Company Number: US-MAYNE PHARMA-2021MYN000482

PATIENT

DRUGS (12)
  1. AMBISOME [Suspect]
     Active Substance: AMPHOTERICIN B
     Indication: ASPERGILLUS INFECTION
     Dosage: 50 MG, BID; EVERY 4 DAY BY NEBULIZER
     Route: 055
  2. QUETIAPINE. [Concomitant]
     Active Substance: QUETIAPINE
     Indication: PRODUCT USED FOR UNKNOWN INDICATION
     Route: 065
  3. AMBISOME [Suspect]
     Active Substance: AMPHOTERICIN B
     Indication: ASPERGILLUS INFECTION
     Dosage: 5 ML, INJECTION
     Dates: start: 201802
  4. AMBISOME [Suspect]
     Active Substance: AMPHOTERICIN B
     Indication: LOWER RESPIRATORY TRACT INFECTION FUNGAL
     Dosage: UNK, BID; INHALATION USE
     Route: 055
  5. ABELCET [Concomitant]
     Active Substance: AMPHOTERICIN B\DIMYRISTOYLPHOSPHATIDYLCHOLINE, DL-\DIMYRISTOYLPHOSPHATIDYLGLYCEROL, DL-
     Indication: PRODUCT USED FOR UNKNOWN INDICATION
  6. AMBISOME [Suspect]
     Active Substance: AMPHOTERICIN B
     Indication: LOWER RESPIRATORY TRACT INFECTION FUNGAL
     Dosage: 5 ML
  7. AMBISOME [Suspect]
     Active Substance: AMPHOTERICIN B
     Dosage: 1/2 ML (RECONSTITUTED IN 10 ML AND 2.5 ML STERILE WATER), (MORNING 1 OF 2), EVERY 12 HOURS
     Route: 055
     Dates: start: 20210118, end: 20210118
  8. SYMBICORT [Concomitant]
     Active Substance: BUDESONIDE\FORMOTEROL FUMARATE DIHYDRATE
     Indication: PRODUCT USED FOR UNKNOWN INDICATION
  9. AMBISOME [Suspect]
     Active Substance: AMPHOTERICIN B
     Dosage: UNK
     Route: 065
     Dates: start: 20210301
  10. LEVALBUTEROL HCL [Concomitant]
     Active Substance: LEVALBUTEROL HYDROCHLORIDE
     Indication: PRODUCT USED FOR UNKNOWN INDICATION
  11. TOLSURA [Suspect]
     Active Substance: ITRACONAZOLE
     Indication: PRODUCT USED FOR UNKNOWN INDICATION
     Dosage: UNK
     Route: 065
  12. ZOLOFT [Concomitant]
     Active Substance: SERTRALINE HYDROCHLORIDE
     Indication: PRODUCT USED FOR UNKNOWN INDICATION

REACTIONS (1)
  - Drug interaction [Unknown]
